FAERS Safety Report 9921135 (Version 1)
Quarter: 2014Q1

REPORT INFORMATION
  Report Type: Spontaneous
  Country: FR (occurrence: FR)
  Receive Date: 20140225
  Receipt Date: 20140225
  Transmission Date: 20141002
  Serious: Yes (Hospitalization)
  Sender: FDA-Public Use
  Company Number: FR-ROCHE-1349458

PATIENT
  Age: 49 Year
  Sex: Female

DRUGS (10)
  1. CELLCEPT [Suspect]
     Indication: PROPHYLAXIS AGAINST TRANSPLANT REJECTION
     Route: 048
     Dates: start: 20131001
  2. ROVALCYTE [Suspect]
     Indication: PROPHYLAXIS AGAINST TRANSPLANT REJECTION
     Route: 048
     Dates: start: 20130812
  3. ADVAGRAF [Concomitant]
     Indication: PROPHYLAXIS AGAINST TRANSPLANT REJECTION
     Route: 048
     Dates: start: 20130911
  4. AMLOR [Concomitant]
     Indication: HYPERTENSION
     Route: 048
     Dates: start: 20130812
  5. PENTACARINAT [Concomitant]
     Route: 048
     Dates: start: 20130812
  6. ARANESP [Concomitant]
     Route: 058
     Dates: start: 20130812
  7. LEVOTHYROX [Concomitant]
     Indication: HYPOTHYROIDISM
     Route: 048
     Dates: start: 20130722
  8. ZYMAD [Concomitant]
     Indication: HYPOVITAMINOSIS
     Route: 048
     Dates: start: 20130722
  9. KARDEGIC [Concomitant]
     Route: 048
     Dates: start: 20130722
  10. INEXIUM [Concomitant]
     Indication: GASTROOESOPHAGEAL REFLUX DISEASE
     Route: 048
     Dates: start: 20130722

REACTIONS (3)
  - Febrile neutropenia [Recovered/Resolved]
  - Agranulocytosis [Recovered/Resolved]
  - Leukopenia [Recovered/Resolved]
